APPROVED DRUG PRODUCT: EPINEPHRINE
Active Ingredient: EPINEPHRINE
Strength: 1MG/10ML (0.1MG/ML)
Dosage Form/Route: SOLUTION;INTRAVENOUS
Application: N211363 | Product #001
Applicant: INTERNATIONAL MEDICATION SYSTEMS LTD
Approved: Aug 15, 2022 | RLD: Yes | RS: Yes | Type: RX